FAERS Safety Report 12006265 (Version 2)
Quarter: 2016Q2

REPORT INFORMATION
  Report Type: Report from Study
  Country: US (occurrence: US)
  Receive Date: 20160204
  Receipt Date: 20160425
  Transmission Date: 20160815
  Serious: Yes (Hospitalization, Other)
  Sender: FDA-Public Use
  Company Number: US-ABBVIE-15K-163-1428974-00

PATIENT
  Sex: Male

DRUGS (5)
  1. HUMIRA [Suspect]
     Active Substance: ADALIMUMAB
     Route: 058
     Dates: start: 2015, end: 201602
  2. HUMIRA [Suspect]
     Active Substance: ADALIMUMAB
     Route: 058
     Dates: start: 2016, end: 201603
  3. ALEVE [Concomitant]
     Active Substance: NAPROXEN SODIUM
     Indication: RHEUMATOID ARTHRITIS
  4. HUMIRA [Suspect]
     Active Substance: ADALIMUMAB
     Indication: RHEUMATOID ARTHRITIS
     Route: 058
     Dates: start: 20150529, end: 20150724
  5. HUMIRA [Suspect]
     Active Substance: ADALIMUMAB
     Route: 058
     Dates: start: 20160401

REACTIONS (10)
  - Sinusitis [Recovered/Resolved]
  - Arthralgia [Unknown]
  - Lung adenocarcinoma stage II [Recovered/Resolved]
  - Arthralgia [Recovering/Resolving]
  - Total lung capacity decreased [Not Recovered/Not Resolved]
  - Pneumothorax [Recovered/Resolved]
  - Procedural complication [Recovered/Resolved]
  - Device issue [Not Recovered/Not Resolved]
  - Joint swelling [Unknown]
  - Pneumothorax [Recovered/Resolved]

NARRATIVE: CASE EVENT DATE: 2015
